FAERS Safety Report 13895989 (Version 1)
Quarter: 2017Q3

REPORT INFORMATION
  Report Type: Spontaneous
  Country: FR (occurrence: FR)
  Receive Date: 20170823
  Receipt Date: 20170823
  Transmission Date: 20171127
  Serious: Yes (Hospitalization)
  Sender: FDA-Public Use
  Company Number: FR-ASTRAZENECA-2017SE85123

PATIENT
  Age: 23723 Day
  Sex: Female

DRUGS (5)
  1. LARGACTIL [Suspect]
     Active Substance: CHLORPROMAZINE
     Dosage: 3 TABLETS IN ONE SINGLE DOSE
     Route: 048
     Dates: start: 20170517
  2. XEROQUEL [Suspect]
     Active Substance: QUETIAPINE FUMARATE
     Dosage: 4 TABLETS IN ONE SINGLE DOSE
     Route: 048
     Dates: start: 20170517
  3. TERALITHE [Suspect]
     Active Substance: LITHIUM CARBONATE
     Dosage: 1 TABLETS IN ONE SINGLE DOSE
     Route: 048
     Dates: start: 20170517
  4. IMOVANE [Suspect]
     Active Substance: ZOPICLONE
     Dosage: 4 TABLETS IN ONE SINGLE DOSE
     Route: 048
     Dates: start: 20170517
  5. LAMICTAL [Suspect]
     Active Substance: LAMOTRIGINE
     Dosage: 2 TABLETS IN ONE SINGLE DOSE
     Route: 048
     Dates: start: 20170517

REACTIONS (2)
  - Electrocardiogram QT prolonged [Unknown]
  - Poisoning deliberate [Recovered/Resolved]

NARRATIVE: CASE EVENT DATE: 20170517
